FAERS Safety Report 9445585 (Version 2)
Quarter: 2013Q3

REPORT INFORMATION
  Report Type: Spontaneous
  Country: US (occurrence: US)
  Receive Date: 20130807
  Receipt Date: 20130910
  Transmission Date: 20140515
  Serious: Yes (Death, Other)
  Sender: FDA-Public Use
  Company Number: US-GILEAD-2013-0080944

PATIENT
  Age: 54 Year
  Sex: Female

DRUGS (8)
  1. LETAIRIS [Suspect]
     Indication: PULMONARY HYPERTENSION
     Route: 048
     Dates: start: 20100106, end: 20130627
  2. LETAIRIS [Suspect]
     Indication: CONNECTIVE TISSUE DISORDER
  3. LASIX                              /00032601/ [Concomitant]
     Indication: CARDIAC FAILURE CONGESTIVE
  4. ALDACTONE                          /00006201/ [Concomitant]
  5. PLAQUENIL                          /00072602/ [Concomitant]
     Indication: SYSTEMIC LUPUS ERYTHEMATOSUS
  6. DIGOXIN [Concomitant]
     Indication: CARDIAC FAILURE CONGESTIVE
  7. ADVAIR [Concomitant]
     Indication: ASTHMA
  8. DHEA [Concomitant]

REACTIONS (1)
  - Death [Fatal]
